FAERS Safety Report 9227490 (Version 2)
Quarter: 2013Q2

REPORT INFORMATION
  Report Type: Report from Study
  Country: TR (occurrence: TR)
  Receive Date: 20130412
  Receipt Date: 20130624
  Transmission Date: 20140414
  Serious: No
  Sender: FDA-Public Use
  Company Number: TR-ELI_LILLY_AND_COMPANY-TR201304002261

PATIENT
  Age: 36 Year
  Sex: Female

DRUGS (4)
  1. HUMAN INSULIN (RDNA ORIGIN) NPH [Suspect]
     Dosage: UNK
     Dates: start: 201107
  2. HEPARIN LMW [Concomitant]
  3. INSULIN [Concomitant]
  4. L-THYROXINE [Concomitant]
     Dosage: 25 UG, UNK

REACTIONS (1)
  - Maternal exposure during pregnancy [Recovered/Resolved]
